FAERS Safety Report 5840489-4 (Version None)
Quarter: 2008Q3

REPORT INFORMATION
  Report Type: 
  Country: None (occurrence: None)
  Receive Date: 20080807
  Receipt Date: 20080807
  Transmission Date: 20090109
  Serious: Yes (Other)
  Sender: FDA-Public Use
  Company Number: None

PATIENT
  Age: 38 Year
  Sex: Female
  Weight: 63.5036 kg

DRUGS (1)
  1. CLEOCIN [Suspect]
     Indication: TONSILLITIS
     Dosage: 1 CAPSULE 3 TIMES A DAY CUTANEOUS, 10 DAYS ONLY TOOK FOR 2
     Route: 003
     Dates: start: 20080805, end: 20080807

REACTIONS (1)
  - URTICARIA [None]
